FAERS Safety Report 21208003 (Version 3)
Quarter: 2022Q3

REPORT INFORMATION
  Report Type: Spontaneous
  Country: US (occurrence: US)
  Receive Date: 20220812
  Receipt Date: 20220831
  Transmission Date: 20221026
  Serious: Yes (Other)
  Sender: FDA-Public Use
  Company Number: US-PFIZER INC-202201052686

PATIENT
  Age: 67 Year
  Sex: Female
  Weight: 68.95 kg

DRUGS (3)
  1. TIKOSYN [Suspect]
     Active Substance: DOFETILIDE
     Indication: Atrial fibrillation
     Dosage: 250 UG, 2X/DAY
     Dates: start: 202110
  2. TIKOSYN [Suspect]
     Active Substance: DOFETILIDE
     Indication: Heart rate increased
     Dosage: 150 UG, 2X/DAY
  3. ELIQUIS [Concomitant]
     Active Substance: APIXABAN
     Indication: Cerebrovascular accident
     Dosage: 5 MG, 2X/DAY
     Dates: start: 202110

REACTIONS (6)
  - Anxiety [Recovering/Resolving]
  - Nervousness [Unknown]
  - Feeling abnormal [Unknown]
  - Tooth extraction [Unknown]
  - COVID-19 [Unknown]
  - Fear [Unknown]
